FAERS Safety Report 8391373-6 (Version None)
Quarter: 2012Q2

REPORT INFORMATION
  Report Type: 
  Country: None (occurrence: None)
  Receive Date: 20120515
  Receipt Date: 20120507
  Transmission Date: 20120825
  Serious: Yes (Hospitalization)
  Sender: FDA-Public Use
  Company Number: 2012SP024338

PATIENT
  Age: 46 Year
  Sex: Male

DRUGS (6)
  1. VICTRELIS [Suspect]
     Indication: HEPATITIS C
     Dosage: 1200 MG;TID;PO
     Route: 048
     Dates: start: 20120102, end: 20120206
  2. ATACAND [Concomitant]
  3. ONGLYZA [Concomitant]
  4. COPEGUS [Suspect]
     Indication: HEPATITIS C
     Dosage: 600 MG;BID
     Dates: start: 20120103, end: 20120206
  5. PEGASYS [Suspect]
     Indication: HEPATITIS C
     Dosage: 90 MCG;QW;SC
     Route: 058
     Dates: start: 20111203, end: 20120206
  6. METFORMIN HCL [Concomitant]

REACTIONS (3)
  - OESOPHAGEAL VARICES HAEMORRHAGE [None]
  - ASCITES [None]
  - PORTAL HYPERTENSION [None]
